FAERS Safety Report 22598881 (Version 1)
Quarter: 2023Q2

REPORT INFORMATION
  Report Type: Spontaneous
  Country: US (occurrence: US)
  Receive Date: 20230614
  Receipt Date: 20230614
  Transmission Date: 20230721
  Serious: Yes (Hospitalization, Other)
  Sender: FDA-Public Use
  Company Number: US-ROCHE-2620945

PATIENT
  Sex: Female
  Weight: 39.498 kg

DRUGS (28)
  1. CAPECITABINE [Suspect]
     Active Substance: CAPECITABINE
     Indication: Breast cancer female
     Route: 048
     Dates: end: 202301
  2. CAPECITABINE [Suspect]
     Active Substance: CAPECITABINE
     Indication: Metastases to bone
     Route: 048
     Dates: end: 202301
  3. CAPECITABINE [Suspect]
     Active Substance: CAPECITABINE
     Indication: Breast cancer metastatic
     Route: 048
     Dates: end: 202301
  4. CAPECITABINE [Suspect]
     Active Substance: CAPECITABINE
     Indication: Breast cancer stage IV
     Route: 048
     Dates: end: 202301
  5. CAPECITABINE [Suspect]
     Active Substance: CAPECITABINE
     Indication: Breast cancer female
     Dosage: TAKE 2 TABLET(S) BY MOUTH EVERY MORNING AND TAKE 1 TABLET IN THE EVENING 2 WEEKS ON 1 WEEK OFF. TABL
     Route: 048
  6. CAPECITABINE [Suspect]
     Active Substance: CAPECITABINE
     Indication: Metastases to bone
     Dosage: TAKE 2 TABLET(S) BY MOUTH EVERY MORNING AND TAKE 1 TABLET IN THE EVENING 2 WEEKS ON 1 WEEK OFF. TABL
     Route: 048
  7. CAPECITABINE [Suspect]
     Active Substance: CAPECITABINE
     Indication: Breast cancer metastatic
     Dosage: TAKE 2 TABLET(S) BY MOUTH EVERY MORNING AND TAKE 1 TABLET IN THE EVENING 2 WEEKS ON 1 WEEK OFF. TABL
     Route: 048
  8. CAPECITABINE [Suspect]
     Active Substance: CAPECITABINE
     Indication: Breast cancer stage IV
     Dosage: TAKE 2 TABLET(S) BY MOUTH EVERY MORNING AND TAKE 1 TABLET IN THE EVENING 2 WEEKS ON 1 WEEK OFF. TABL
     Route: 048
  9. CAPECITABINE [Suspect]
     Active Substance: CAPECITABINE
     Indication: Breast cancer female
     Dosage: 1 TABLET IN THE EVENING, 2 WEEKS ON AND 2 WEEKS OFF
     Route: 048
  10. CAPECITABINE [Suspect]
     Active Substance: CAPECITABINE
     Indication: Metastases to bone
     Dosage: 1 TABLET IN THE EVENING, 2 WEEKS ON AND 2 WEEKS OFF
     Route: 048
  11. CAPECITABINE [Suspect]
     Active Substance: CAPECITABINE
     Indication: Breast cancer metastatic
     Dosage: 1 TABLET IN THE EVENING, 2 WEEKS ON AND 2 WEEKS OFF
     Route: 048
  12. CAPECITABINE [Suspect]
     Active Substance: CAPECITABINE
     Indication: Breast cancer stage IV
     Dosage: 1 TABLET IN THE EVENING, 2 WEEKS ON AND 2 WEEKS OFF
     Route: 048
  13. CAPECITABINE [Suspect]
     Active Substance: CAPECITABINE
     Indication: Breast cancer female
     Dosage: START DATE OF DOSE-/JAN/2023
     Route: 048
  14. CAPECITABINE [Suspect]
     Active Substance: CAPECITABINE
     Indication: Metastases to bone
     Dosage: START DATE OF DOSE-/JAN/2023
     Route: 048
  15. CAPECITABINE [Suspect]
     Active Substance: CAPECITABINE
     Indication: Breast cancer metastatic
     Dosage: START DATE OF DOSE-/JAN/2023
     Route: 048
  16. CAPECITABINE [Suspect]
     Active Substance: CAPECITABINE
     Indication: Breast cancer stage IV
     Dosage: START DATE OF DOSE-/JAN/2023
     Route: 048
  17. CAPECITABINE [Suspect]
     Active Substance: CAPECITABINE
     Indication: Breast cancer female
     Dosage: 3 IN THE MORNING AND 3 AT NIGHT
     Route: 048
  18. CAPECITABINE [Suspect]
     Active Substance: CAPECITABINE
     Indication: Metastases to bone
     Dosage: 3 IN THE MORNING AND 3 AT NIGHT
     Route: 048
  19. CAPECITABINE [Suspect]
     Active Substance: CAPECITABINE
     Indication: Breast cancer metastatic
     Dosage: 3 IN THE MORNING AND 3 AT NIGHT
     Route: 048
  20. CAPECITABINE [Suspect]
     Active Substance: CAPECITABINE
     Indication: Breast cancer stage IV
     Dosage: 3 IN THE MORNING AND 3 AT NIGHT
     Route: 048
  21. CAPECITABINE [Suspect]
     Active Substance: CAPECITABINE
     Indication: Breast cancer female
  22. CAPECITABINE [Suspect]
     Active Substance: CAPECITABINE
     Indication: Metastases to bone
  23. CAPECITABINE [Suspect]
     Active Substance: CAPECITABINE
     Indication: Breast cancer metastatic
  24. CAPECITABINE [Suspect]
     Active Substance: CAPECITABINE
     Indication: Breast cancer stage IV
  25. MELOXICAM [Concomitant]
     Active Substance: MELOXICAM
     Indication: Back pain
     Route: 048
  26. VITAMINS [Concomitant]
     Active Substance: VITAMINS
  27. VITAMIN C [Concomitant]
     Active Substance: ASCORBIC ACID
  28. VITAMIN D3 [Concomitant]
     Active Substance: CHOLECALCIFEROL

REACTIONS (24)
  - Pneumonia [Recovered/Resolved]
  - Compression fracture [Unknown]
  - Malignant melanoma [Unknown]
  - Spinal fracture [Recovered/Resolved with Sequelae]
  - Lung neoplasm malignant [Unknown]
  - Cough [Unknown]
  - Dry skin [Not Recovered/Not Resolved]
  - Osteoporosis [Unknown]
  - Bronchitis [Unknown]
  - Road traffic accident [Unknown]
  - Rotator cuff syndrome [Unknown]
  - Back pain [Not Recovered/Not Resolved]
  - Headache [Unknown]
  - Dizziness [Unknown]
  - Nausea [Unknown]
  - Skin fissures [Unknown]
  - Lumbar vertebral fracture [Recovered/Resolved]
  - Alopecia [Not Recovered/Not Resolved]
  - Urinary tract infection [Unknown]
  - Thrombosis [Unknown]
  - Pneumonia [Unknown]
  - Dry eye [Unknown]
  - Blister [Recovered/Resolved]
  - Skin fissures [Unknown]

NARRATIVE: CASE EVENT DATE: 20200101
